FAERS Safety Report 6369467-6 (Version None)
Quarter: 2009Q3

REPORT INFORMATION
  Report Type: 
  Country: None (occurrence: None)
  Receive Date: 20090923
  Receipt Date: 20090909
  Transmission Date: 20100115
  Serious: Yes (Congenital Anomaly)
  Sender: FDA-Public Use
  Company Number: GB-RANBAXY-2009RR-28042

PATIENT
  Sex: Male

DRUGS (1)
  1. ISOTRETINOIN [Suspect]

REACTIONS (1)
  - ASTIGMATISM [None]
